FAERS Safety Report 15748953 (Version 1)
Quarter: 2018Q4

REPORT INFORMATION
  Report Type: Spontaneous
  Country: US (occurrence: US)
  Receive Date: 20181221
  Receipt Date: 20181221
  Transmission Date: 20190205
  Serious: No
  Sender: FDA-Public Use
  Company Number: US-RECKITT BENCKISER HEALTHCARE INT LIMITED-RB-91832-2018

PATIENT
  Age: 19 Year
  Sex: Male

DRUGS (2)
  1. ADVIL (MEFENAMIC ACID) [Suspect]
     Active Substance: MEFENAMIC ACID
     Indication: BRONCHITIS
     Dosage: UNK
     Route: 065
     Dates: start: 20180929
  2. DELSYM [Suspect]
     Active Substance: DEXTROMETHORPHAN
     Indication: BRONCHITIS
     Dosage: PATIENT TOOK SIP FROM PRODUCT EVERY COUPLE HOUR
     Route: 065
     Dates: start: 20180929

REACTIONS (5)
  - Product use in unapproved indication [Unknown]
  - Dizziness [Unknown]
  - Asthenia [Unknown]
  - Dysstasia [Unknown]
  - Wrong technique in product usage process [Unknown]
